FAERS Safety Report 20168397 (Version 1)
Quarter: 2021Q4

REPORT INFORMATION
  Report Type: Spontaneous
  Country: DE (occurrence: DE)
  Receive Date: 20211210
  Receipt Date: 20211210
  Transmission Date: 20220304
  Serious: Yes (Other)
  Sender: FDA-Public Use
  Company Number: DE-TEVA-2021-DE-1985396

PATIENT
  Age: 68 Year
  Sex: Male
  Weight: 65 kg

DRUGS (6)
  1. PRAVASTATIN SODIUM [Suspect]
     Active Substance: PRAVASTATIN SODIUM
     Indication: Blood cholesterol increased
     Dosage: 20 MILLIGRAM DAILY;
     Route: 048
     Dates: start: 20211020
  2. PRAVASTATIN SODIUM [Suspect]
     Active Substance: PRAVASTATIN SODIUM
     Dosage: 10 MILLIGRAM DAILY;
     Route: 048
     Dates: start: 20211119
  3. BISOPROLOL [Concomitant]
     Active Substance: BISOPROLOL
  4. MYFORTIC [Concomitant]
     Active Substance: MYCOPHENOLATE SODIUM
     Dosage: IMMUNOSUPPRESSANT DRUG THERAPY
  5. PREDNISOLONE [Concomitant]
     Active Substance: PREDNISOLONE
     Dosage: IMMUNOSUPPRESSANT DRUG THERAPY
  6. Dibrugrat [Concomitant]
     Dosage: DOSE: 2 MG IN THE MORNING AND 1.5 MG IN THE EVENING; IMMUNOSUPPRESSANT DRUG THERAPY

REACTIONS (7)
  - Erectile dysfunction [Not Recovered/Not Resolved]
  - Arthralgia [Not Recovered/Not Resolved]
  - Myalgia [Not Recovered/Not Resolved]
  - Visual impairment [Not Recovered/Not Resolved]
  - Tinnitus [Not Recovered/Not Resolved]
  - Sleep disorder [Not Recovered/Not Resolved]
  - Middle insomnia [Not Recovered/Not Resolved]

NARRATIVE: CASE EVENT DATE: 20211101
